FAERS Safety Report 13193442 (Version 1)
Quarter: 2017Q1

REPORT INFORMATION
  Report Type: Spontaneous
  Country: US (occurrence: US)
  Receive Date: 20170207
  Receipt Date: 20170207
  Transmission Date: 20170428
  Serious: No
  Sender: FDA-Public Use
  Company Number: US-ASTRAZENECA-2017SE09219

PATIENT
  Age: 214 Month
  Sex: Female
  Weight: 61.2 kg

DRUGS (4)
  1. PULMICORT RESPULES [Suspect]
     Active Substance: BUDESONIDE
     Indication: INFLAMMATION
     Dosage: 1MG/2ML TWO TIMES A DAY
     Route: 055
     Dates: start: 201611
  2. PULMICORT RESPULES [Suspect]
     Active Substance: BUDESONIDE
     Indication: PHARYNGEAL OEDEMA
     Dosage: 1MG/2ML TWO TIMES A DAY
     Route: 055
     Dates: start: 201611
  3. DULERA [Concomitant]
     Active Substance: FORMOTEROL FUMARATE DIHYDRATE\MOMETASONE FUROATE
     Indication: ASTHMA
     Route: 055
  4. PRILOSEC [Suspect]
     Active Substance: OMEPRAZOLE MAGNESIUM
     Indication: DYSPEPSIA
     Route: 048
     Dates: start: 2016

REACTIONS (4)
  - Pharyngitis [Unknown]
  - Pharyngeal oedema [Unknown]
  - Off label use [Not Recovered/Not Resolved]
  - Product use issue [Not Recovered/Not Resolved]

NARRATIVE: CASE EVENT DATE: 201611
